FAERS Safety Report 5296937-4 (Version None)
Quarter: 2007Q1

REPORT INFORMATION
  Report Type: 
  Country: None (occurrence: None)
  Receive Date: 20070201
  Receipt Date: 20061005
  Transmission Date: 20070707
  Serious: No
  Sender: FDA-Public Use
  Company Number: 2006PV022581

PATIENT
  Age: 45 Year
  Sex: Female
  Weight: 97.5234 kg

DRUGS (2)
  1. BYETTA [Suspect]
     Indication: METABOLIC SYNDROME
     Dosage: 10 MCG;BID;SC
     Route: 058
     Dates: start: 20060823
  2. SYNTHROID [Concomitant]

REACTIONS (3)
  - MEDICATION ERROR [None]
  - NAUSEA [None]
  - WEIGHT DECREASED [None]
